FAERS Safety Report 17816909 (Version 1)
Quarter: 2020Q2

REPORT INFORMATION
  Report Type: Spontaneous
  Country: US (occurrence: US)
  Receive Date: 20200522
  Receipt Date: 20200522
  Transmission Date: 20200714
  Serious: No
  Sender: FDA-Public Use
  Company Number: US-FDC LIMITED-2019RIS00365

PATIENT
  Sex: Female
  Weight: 60.32 kg

DRUGS (4)
  1. TIMOLOL MALEATE. [Suspect]
     Active Substance: TIMOLOL MALEATE
     Indication: OPEN ANGLE GLAUCOMA
     Dosage: 1 DROP, 2X/DAY
     Route: 047
     Dates: start: 201805
  2. TIMOLOL MALEATE. [Suspect]
     Active Substance: TIMOLOL MALEATE
     Dosage: 1 DROP, 1X/DAY
     Route: 047
  3. TIMOLOL MALEATE (SANDOZ MANUFACTURER) [Suspect]
     Active Substance: TIMOLOL MALEATE
     Indication: OPEN ANGLE GLAUCOMA
     Dosage: 1 GTT, 2X/DAY
     Route: 047
  4. TIMOLOL MALEATE (SANDOZ MANUFACTURER) [Suspect]
     Active Substance: TIMOLOL MALEATE
     Dosage: 1 GTT, 1X/DAY
     Route: 047

REACTIONS (3)
  - Pulse abnormal [Unknown]
  - Chest pain [Not Recovered/Not Resolved]
  - Feeling abnormal [Not Recovered/Not Resolved]

NARRATIVE: CASE EVENT DATE: 2018
